FAERS Safety Report 5960267-5 (Version None)
Quarter: 2008Q4

REPORT INFORMATION
  Report Type: 
  Country: None (occurrence: None)
  Receive Date: 20081118
  Receipt Date: 20081118
  Transmission Date: 20090506
  Serious: No
  Sender: FDA-Public Use
  Company Number: None

PATIENT
  Age: 42 Year
  Sex: Female
  Weight: 90.7194 kg

DRUGS (1)
  1. LEVAQUIN [Suspect]
     Indication: INFECTION
     Dosage: 750MG DAILY PO
     Route: 048
     Dates: start: 20081031, end: 20081103

REACTIONS (3)
  - ARTHRALGIA [None]
  - BACK PAIN [None]
  - TENDON PAIN [None]
